FAERS Safety Report 8797753 (Version 1)
Quarter: 2012Q4

REPORT INFORMATION
  Report Type: 
  Country: US (occurrence: US)
  Receive Date: 20120920
  Receipt Date: 20120920
  Transmission Date: 20130627
  Serious: Yes (Other)
  Sender: FDA-Public Use
  Company Number: US-MERCK-1209USA005828

PATIENT
  Sex: Female

DRUGS (9)
  1. SAPHRIS [Suspect]
     Dosage: 5 mg, UNK
     Dates: start: 20100803, end: 20100805
  2. SAPHRIS [Suspect]
     Dosage: 10 mg, UNK
     Dates: start: 20100806, end: 20100824
  3. GEODON [Suspect]
  4. QUETIAPINE FUMARATE [Suspect]
  5. MIRALAX [Concomitant]
  6. HALOPERIDOL [Concomitant]
  7. BENZTROPINE MESYLATE [Concomitant]
  8. LORAZEPAM [Concomitant]
  9. MAGNESIA [MILK OF] [Concomitant]

REACTIONS (6)
  - Extrapyramidal disorder [Unknown]
  - Syncope [Unknown]
  - Fall [Unknown]
  - Akathisia [Unknown]
  - Tremor [Unknown]
  - Therapeutic response decreased [Unknown]
